FAERS Safety Report 16719914 (Version 2)
Quarter: 2022Q2

REPORT INFORMATION
  Report Type: Spontaneous
  Country: US (occurrence: US)
  Receive Date: 20190820
  Receipt Date: 20220526
  Transmission Date: 20220721
  Serious: Yes (Death, Other)
  Sender: FDA-Public Use
  Company Number: US-PFIZER INC-2019276307

PATIENT
  Age: 82 Year
  Sex: Female

DRUGS (1)
  1. BOSULIF [Suspect]
     Active Substance: BOSUTINIB MONOHYDRATE
     Indication: Chronic myeloid leukaemia (in remission)
     Dosage: 300 MG, DAILY (100 MG, TAKE 3 TABLETS BY MOUTH EVERY DAY)
     Route: 048

REACTIONS (4)
  - Death [Fatal]
  - Cardiac failure [Unknown]
  - Fatigue [Recovered/Resolved]
  - Pleural effusion [Unknown]

NARRATIVE: CASE EVENT DATE: 20210718
